FAERS Safety Report 6200392-7 (Version None)
Quarter: 2009Q2

REPORT INFORMATION
  Report Type: 
  Country: None (occurrence: None)
  Receive Date: 20090522
  Receipt Date: 20090512
  Transmission Date: 20091009
  Serious: Yes (Other)
  Sender: FDA-Public Use
  Company Number: US-ELI_LILLY_AND_COMPANY-US200905003140

PATIENT
  Age: 39 Year
  Sex: Female

DRUGS (1)
  1. CYMBALTA [Suspect]
     Dosage: 1 D/F, UNK
     Route: 048

REACTIONS (2)
  - HEPATIC ENZYME INCREASED [None]
  - HEPATITIS C [None]
